FAERS Safety Report 5588625-1 (Version None)
Quarter: 2007Q4

REPORT INFORMATION
  Report Type: 
  Country: None (occurrence: None)
  Receive Date: 20071212
  Receipt Date: 20071019
  Transmission Date: 20080405
  Serious: No
  Sender: FDA-Public Use
  Company Number: 2007RL000463

PATIENT
  Age: 48 Year
  Sex: Female

DRUGS (3)
  1. LOVAZA [Suspect]
     Indication: BLOOD TRIGLYCERIDES INCREASED
     Dosage: 1 GM;TID;PO
     Route: 048
     Dates: start: 20061101, end: 20061101
  2. LOVAZA [Suspect]
     Indication: INFLAMMATION
     Dosage: 1 GM;TID;PO
     Route: 048
     Dates: start: 20061101, end: 20061101
  3. ^MANY VITAMINS^ [Concomitant]

REACTIONS (2)
  - NERVOUS SYSTEM DISORDER [None]
  - OFF LABEL USE [None]
